FAERS Safety Report 15259758 (Version 4)
Quarter: 2018Q4

REPORT INFORMATION
  Report Type: Spontaneous
  Country: VN (occurrence: VN)
  Receive Date: 20180809
  Receipt Date: 20181213
  Transmission Date: 20190204
  Serious: Yes (Other)
  Sender: FDA-Public Use
  Company Number: VN-LEO PHARMA-310409

PATIENT
  Age: 26 Year
  Sex: Female

DRUGS (2)
  1. PROTOPIC [Suspect]
     Active Substance: TACROLIMUS
     Indication: SEBORRHOEIC DERMATITIS
     Dates: start: 201704
  2. PROTOPIC [Suspect]
     Active Substance: TACROLIMUS
     Indication: DERMATITIS CONTACT
     Dates: start: 201805, end: 201806

REACTIONS (27)
  - Bacterial infection [Unknown]
  - Madarosis [Unknown]
  - Acne [Unknown]
  - Blister [Unknown]
  - Skin fissures [Recovering/Resolving]
  - Sensory disturbance [Unknown]
  - Skin disorder [Unknown]
  - Headache [Unknown]
  - Overdose [Unknown]
  - Haematochezia [Recovered/Resolved]
  - Skin odour abnormal [Unknown]
  - Formication [Unknown]
  - Rash [Unknown]
  - Onychomycosis [Unknown]
  - Abdominal pain [Unknown]
  - Haematuria [Recovered/Resolved]
  - Hair colour changes [Unknown]
  - Pyrexia [Unknown]
  - Infective glossitis [Unknown]
  - Gastritis [Unknown]
  - Product use in unapproved indication [Unknown]
  - Spinal pain [Unknown]
  - Hair growth abnormal [Unknown]
  - Vomiting [Unknown]
  - Nausea [Unknown]
  - Gastrointestinal infection [Unknown]
  - Pruritus [Recovering/Resolving]

NARRATIVE: CASE EVENT DATE: 201806
